FAERS Safety Report 8827658 (Version 2)
Quarter: 2012Q4

REPORT INFORMATION
  Report Type: 
  Country: US (occurrence: US)
  Receive Date: 20121008
  Receipt Date: 20121016
  Transmission Date: 20130627
  Serious: No
  Sender: FDA-Public Use
  Company Number: US-PFIZER INC-2012244519

PATIENT
  Age: 43 Year
  Sex: Female
  Weight: 104 kg

DRUGS (2)
  1. CELEBREX [Suspect]
     Indication: ARTHRITIS
     Dosage: UNK, daily
     Route: 048
     Dates: start: 20120925
  2. LISINOPRIL [Concomitant]
     Indication: HYPERTENSION
     Dosage: 12.5 mg, 2x/day

REACTIONS (1)
  - Feeling abnormal [Not Recovered/Not Resolved]
